FAERS Safety Report 8865739 (Version 1)
Quarter: 2012Q4

REPORT INFORMATION
  Report Type: 
  Country: US (occurrence: US)
  Receive Date: 20121024
  Receipt Date: 20121024
  Transmission Date: 20130627
  Serious: No
  Sender: FDA-Public Use
  Company Number: US-AMGEN-USASP2011069166

PATIENT
  Age: 50 Year
  Sex: Female
  Weight: 59.86 kg

DRUGS (10)
  1. ENBREL [Suspect]
     Indication: PRODUCT USED FOR UNKNOWN INDICATION
     Dosage: 50 mg, qwk
     Route: 058
  2. MELOXICAM [Concomitant]
     Dosage: 7.5 mg, UNK
  3. METHOTREXATE [Concomitant]
     Dosage: 2.5 mg, UNK
  4. ADVAIR HFA [Concomitant]
     Dosage: UNK
  5. NEXIUM                             /01479302/ [Concomitant]
     Dosage: 20 mg, UNK
  6. LOSARTAN [Concomitant]
     Dosage: 25 mg, UNK
  7. PRENATAL VITAMINS                  /01549301/ [Concomitant]
     Dosage: UNK
  8. MELATONIN [Concomitant]
     Dosage: 1 mg, UNK
  9. POTASSIUM CHLORIDE [Concomitant]
  10. HYDROXYZINE [Concomitant]

REACTIONS (7)
  - Hot flush [Unknown]
  - Dry skin [Unknown]
  - Irritability [Unknown]
  - Nausea [Unknown]
  - Fatigue [Unknown]
  - Mood altered [Unknown]
  - Sinusitis [Unknown]
